FAERS Safety Report 13707414 (Version 2)
Quarter: 2017Q3

REPORT INFORMATION
  Report Type: Spontaneous
  Country: US (occurrence: US)
  Receive Date: 20170630
  Receipt Date: 20170717
  Transmission Date: 20171127
  Serious: Yes (Hospitalization, Other)
  Sender: FDA-Public Use
  Company Number: US-TEVA-780411USA

PATIENT
  Age: 56 Year
  Sex: Female

DRUGS (3)
  1. BACLOFEN. [Suspect]
     Active Substance: BACLOFEN
     Indication: HYPOAESTHESIA
     Route: 065
  2. TIZANIDINE. [Interacting]
     Active Substance: TIZANIDINE
     Route: 065
  3. METHOCARBAMOL. [Interacting]
     Active Substance: METHOCARBAMOL
     Route: 065

REACTIONS (4)
  - Craniocerebral injury [Unknown]
  - Loss of consciousness [Recovered/Resolved]
  - Drug interaction [Unknown]
  - Aspiration [Recovered/Resolved]

NARRATIVE: CASE EVENT DATE: 20170503
